FAERS Safety Report 6043438-1 (Version None)
Quarter: 2009Q1

REPORT INFORMATION
  Report Type: 
  Country: None (occurrence: None)
  Receive Date: 20090115
  Receipt Date: 20090115
  Transmission Date: 20090719
  Serious: Yes (Hospitalization)
  Sender: FDA-Public Use
  Company Number: None

PATIENT
  Age: 42 Year
  Sex: Male
  Weight: 86 kg

DRUGS (6)
  1. TOPAMAX [Suspect]
     Indication: CONVULSION
     Dosage: 50 MG DAILY
  2. TRAZODONE HCL [Concomitant]
  3. PREVACID [Concomitant]
  4. NEXIUM [Concomitant]
  5. NADOLOL [Concomitant]
  6. MAXALT [Concomitant]

REACTIONS (4)
  - ABDOMINAL PAIN [None]
  - JAUNDICE [None]
  - NAUSEA [None]
  - VOMITING [None]
